FAERS Safety Report 19867056 (Version 1)
Quarter: 2021Q3

REPORT INFORMATION
  Report Type: Spontaneous
  Country: US (occurrence: US)
  Receive Date: 20210922
  Receipt Date: 20210922
  Transmission Date: 20211014
  Serious: Yes (Other)
  Sender: FDA-Public Use
  Company Number: None

PATIENT
  Age: 77 Year
  Sex: Female
  Weight: 110.25 kg

DRUGS (2)
  1. REGEN?COV [Suspect]
     Active Substance: CASIRIVIMAB\IMDEVIMAB
     Indication: COVID-19
     Dosage: ?          OTHER FREQUENCY:X1;?
     Route: 041
     Dates: start: 20210804, end: 20210804
  2. REGEN COV [Concomitant]
     Dates: start: 20210804, end: 20210804

REACTIONS (3)
  - Chills [None]
  - Tremor [None]
  - Feeling cold [None]

NARRATIVE: CASE EVENT DATE: 20210804
